FAERS Safety Report 9168594 (Version 2)
Quarter: 2013Q1

REPORT INFORMATION
  Report Type: Report from Study
  Country: DE (occurrence: DE)
  Receive Date: 20130318
  Receipt Date: 20130320
  Transmission Date: 20140127
  Serious: Yes (Other)
  Sender: FDA-Public Use
  Company Number: DE-009507513-1303DEU005831

PATIENT
  Age: 69 Year
  Sex: Male
  Weight: 113.2 kg

DRUGS (5)
  1. SIMVASTATIN [Suspect]
     Indication: ACUTE CORONARY SYNDROME
     Dosage: UNK
     Route: 048
     Dates: start: 20100701
  2. BISOPROLOL [Concomitant]
     Dosage: DAILY DOSE 2.5 MG
     Route: 048
     Dates: start: 20100705
  3. HYDROCHLOROTHIAZIDE [Concomitant]
     Dosage: DAILY DOSE 12.5 MG
     Route: 048
     Dates: start: 20100705
  4. RAMIPRIL [Concomitant]
     Dosage: DAILY DOSE 2.5 MG
     Route: 048
     Dates: start: 20100705
  5. ASPIRIN [Concomitant]
     Dosage: DAILY DOSE 100 MG
     Route: 048
     Dates: start: 20100705

REACTIONS (1)
  - Malignant melanoma in situ [Recovered/Resolved]
